FAERS Safety Report 7099138-2 (Version None)
Quarter: 2010Q4

REPORT INFORMATION
  Report Type: 
  Country: None (occurrence: None)
  Receive Date: 20101112
  Receipt Date: 20101108
  Transmission Date: 20110411
  Serious: Yes (Other)
  Sender: FDA-Public Use
  Company Number: B0684094A

PATIENT
  Sex: Female
  Weight: 66.5 kg

DRUGS (11)
  1. LAPATINIB [Suspect]
     Indication: BREAST CANCER METASTATIC
     Dosage: 44000MG CUMULATIVE DOSE
     Route: 048
     Dates: start: 20100921
  2. DOCETAXEL [Suspect]
     Indication: BREAST CANCER METASTATIC
     Dosage: 128MG CYCLIC
     Route: 042
     Dates: start: 20100921
  3. CRESTOR [Concomitant]
     Indication: HYPERCHOLESTEROLAEMIA
     Route: 048
  4. MICARDIS [Concomitant]
     Indication: HYPERTENSION
     Route: 048
  5. STILNOX [Concomitant]
     Indication: INSOMNIA
     Route: 048
  6. XANAX [Concomitant]
     Indication: ANXIETY
     Route: 048
  7. ATARAX [Concomitant]
     Indication: ANXIETY
     Route: 048
  8. DAFALGAN [Concomitant]
     Indication: PAIN
     Route: 048
  9. IMODIUM [Concomitant]
     Indication: DIARRHOEA
     Dates: start: 20100925
  10. VOGALENE [Concomitant]
     Indication: NAUSEA
     Dates: start: 20100922
  11. NEXIUM [Concomitant]
     Indication: DYSPEPSIA
     Dates: start: 20100923

REACTIONS (1)
  - NEUTROPENIA [None]
